FAERS Safety Report 6530852-0 (Version None)
Quarter: 2010Q1

REPORT INFORMATION
  Report Type: 
  Country: None (occurrence: None)
  Receive Date: 20100108
  Receipt Date: 20090409
  Transmission Date: 20100710
  Serious: No
  Sender: FDA-Public Use
  Company Number: A0777908A

PATIENT
  Age: 55 Year
  Sex: Male

DRUGS (8)
  1. LOVAZA [Suspect]
     Indication: BLOOD CHOLESTEROL INCREASED
     Route: 048
     Dates: start: 20081201
  2. PLAVIX [Concomitant]
  3. ASPIRIN [Concomitant]
  4. TARKA [Concomitant]
  5. LOPRESSOR [Concomitant]
  6. AVODART [Concomitant]
  7. FLOMAX [Concomitant]
  8. PROTONIX [Concomitant]

REACTIONS (4)
  - BLOOD CHOLESTEROL INCREASED [None]
  - GLYCOSYLATED HAEMOGLOBIN DECREASED [None]
  - HIGH DENSITY LIPOPROTEIN DECREASED [None]
  - LOW DENSITY LIPOPROTEIN INCREASED [None]
